FAERS Safety Report 9222809 (Version 1)
Quarter: 2013Q1

REPORT INFORMATION
  Report Type: Spontaneous
  Country: US (occurrence: None)
  Receive Date: 20120914
  Receipt Date: 20120914
  Transmission Date: 20140127
  Serious: Yes (Other)
  Sender: FDA-Public Use
  Company Number: JPI-P-019542

PATIENT
  Age: 42 Year
  Sex: Male
  Weight: 90.72 kg

DRUGS (4)
  1. XYREM (500 MILLIGRAM/MILLILITERS, SOLUTION) (SODIUM OXYBATE) [Suspect]
     Indication: SLEEP DISORDER
     Route: 048
     Dates: start: 20120123, end: 201203
  2. XYREM (500 MILLIGRAM/MILLILITERS, SOLUTION) (SODIUM OXYBATE) [Suspect]
     Indication: INSOMNIA
     Route: 048
     Dates: start: 20120123, end: 201203
  3. ACETAMINOPHEN W/OXYCODONE (PERCOCET) (TABLETS) [Concomitant]
  4. DEPAKOTE (VALPROIC ACID) (500 MILLIGRAM, TABLETS) [Concomitant]

REACTIONS (17)
  - Suicidal ideation [None]
  - Condition aggravated [None]
  - Burns fourth degree [None]
  - Frustration [None]
  - Abnormal sleep-related event [None]
  - Drug ineffective for unapproved indication [None]
  - Insomnia [None]
  - Disorientation [None]
  - Abnormal dreams [None]
  - Drug dose omission [None]
  - Intentional drug misuse [None]
  - Depression [None]
  - Hangover [None]
  - Nasopharyngitis [None]
  - Cough [None]
  - Upper respiratory tract congestion [None]
  - Crying [None]
